FAERS Safety Report 6714279-4 (Version None)
Quarter: 2010Q2

REPORT INFORMATION
  Report Type: 
  Country: None (occurrence: None)
  Receive Date: 20100506
  Receipt Date: 20100107
  Transmission Date: 20101027
  Serious: No
  Sender: FDA-Public Use
  Company Number: US-BAUSCH-2010BL000101

PATIENT
  Age: 60 Year
  Sex: Female
  Weight: 54 kg

DRUGS (3)
  1. LOTEMAX [Suspect]
     Indication: BLEPHARITIS
     Route: 047
     Dates: start: 20091001, end: 20091101
  2. LOTEMAX [Suspect]
     Route: 047
     Dates: start: 20091204, end: 20091212
  3. AZASITE [Suspect]
     Indication: BLEPHARITIS
     Route: 047
     Dates: start: 20091204, end: 20091212

REACTIONS (1)
  - VISION BLURRED [None]
